FAERS Safety Report 5594216-9 (Version None)
Quarter: 2007Q4

REPORT INFORMATION
  Report Type: 
  Country: None (occurrence: None)
  Receive Date: 20071218
  Receipt Date: 20070608
  Transmission Date: 20080405
  Serious: Yes (Other)
  Sender: FDA-Public Use
  Company Number: 2007047656

PATIENT
  Sex: Male

DRUGS (1)
  1. BEXTRA [Suspect]
     Dosage: ORAL
     Route: 048
     Dates: start: 20020321

REACTIONS (2)
  - DEEP VEIN THROMBOSIS [None]
  - MYOCARDIAL INFARCTION [None]
